FAERS Safety Report 18962572 (Version 1)
Quarter: 2021Q1

REPORT INFORMATION
  Report Type: Spontaneous
  Country: US (occurrence: US)
  Receive Date: 20210302
  Receipt Date: 20210302
  Transmission Date: 20210420
  Serious: Yes (Hospitalization)
  Sender: FDA-Public Use
  Company Number: None

PATIENT
  Age: 64 Year
  Sex: Male

DRUGS (1)
  1. HYDROCHLOROTHIAZIDE /LISINOPRIL (HYDROLORTHIAZIDE 12.5MG/LISINOPRIL 20 [Suspect]
     Active Substance: HYDROCHLOROTHIAZIDE\LISINOPRIL
     Indication: HYPERTENSION
     Dates: start: 20161220, end: 20200723

REACTIONS (1)
  - Angioedema [None]

NARRATIVE: CASE EVENT DATE: 20200723
